FAERS Safety Report 4281133-X (Version None)
Quarter: 2004Q1

REPORT INFORMATION
  Report Type: 
  Country: None (occurrence: None)
  Receive Date: 20040107
  Receipt Date: 20030718
  Transmission Date: 20041129
  Serious: Yes (Other)
  Sender: FDA-Public Use
  Company Number: 2003031454

PATIENT
  Sex: Female
  Weight: 86.1834 kg

DRUGS (7)
  1. PENICILLIN G PROCAINE [Suspect]
     Indication: ILL-DEFINED DISORDER
     Dosage: ORAL
     Route: 048
  2. PREDNISONE [Concomitant]
  3. HYOSCYAMINE SULFATE AND PHENOBARBITAL [Concomitant]
  4. PHENOBARBITAL TAB [Concomitant]
  5. ENALAPRIL MALEATE [Concomitant]
  6. LIDOCAINE [Concomitant]
  7. MEPERIDINE HYDROCHLORIDE [Concomitant]

REACTIONS (1)
  - ANAPHYLACTIC REACTION [None]
